FAERS Safety Report 11126155 (Version 1)
Quarter: 2015Q2

REPORT INFORMATION
  Report Type: Spontaneous
  Country: FR (occurrence: FR)
  Receive Date: 20150520
  Receipt Date: 20150520
  Transmission Date: 20150821
  Serious: Yes (Hospitalization)
  Sender: FDA-Public Use
  Company Number: FR-ASTRAZENECA-2015SE44797

PATIENT
  Age: 58 Year
  Sex: Male

DRUGS (1)
  1. CRESTOR [Suspect]
     Active Substance: ROSUVASTATIN CALCIUM
     Indication: DYSLIPIDAEMIA
     Route: 048
     Dates: start: 2000, end: 20150420

REACTIONS (2)
  - Fall [Recovered/Resolved with Sequelae]
  - Tendon rupture [Recovered/Resolved with Sequelae]

NARRATIVE: CASE EVENT DATE: 20150406
